FAERS Safety Report 4708785-1 (Version None)
Quarter: 2005Q3

REPORT INFORMATION
  Report Type: 
  Country: None (occurrence: None)
  Receive Date: 20050707
  Receipt Date: 20050622
  Transmission Date: 20060218
  Serious: Yes (Hospitalization, Other)
  Sender: FDA-Public Use
  Company Number: GBWYE766822JUN05

PATIENT
  Sex: Male

DRUGS (3)
  1. ENBREL [Suspect]
     Indication: ANKYLOSING SPONDYLITIS
     Dosage: UNKNOWN
     Route: 058
  2. NSAID'S [Concomitant]
     Dosage: UNKNOWN
  3. UNSPECIFIED MEDICATION [Concomitant]

REACTIONS (2)
  - SENSORY LOSS [None]
  - TRANSIENT ISCHAEMIC ATTACK [None]
